FAERS Safety Report 4990866-9 (Version None)
Quarter: 2006Q1

REPORT INFORMATION
  Report Type: 
  Country: None (occurrence: None)
  Receive Date: 20060314
  Receipt Date: 20051202
  Transmission Date: 20060701
  Serious: No
  Sender: FDA-Public Use
  Company Number: 2005-02093

PATIENT
  Age: 55 Year
  Sex: Male
  Weight: 83.5 kg

DRUGS (12)
  1. VELCADE [Suspect]
     Indication: MANTLE CELL LYMPHOMA
     Dosage: 1.50 MG/M2, INTRAVENOUS
     Route: 042
     Dates: start: 20050815, end: 20051003
  2. KEFLEX [Suspect]
     Indication: BLEPHARITIS
     Dosage: 500.00 MG, Q8HR
     Dates: start: 20050912, end: 20050916
  3. KYRTIL (GRANISETRON) [Concomitant]
  4. ACETAMINOPHEN [Concomitant]
  5. RITUXAN [Concomitant]
  6. BENADRYL (SODIUM CITRATE, AMMONIUM CHLORIDE, MENTHOL, DIPHENHYDRAMINE [Concomitant]
  7. SOLU-MEDROL [Concomitant]
  8. VARDENAFIL HYDROCHLORIDE (VARDENAFIL HYDROCHLORIDE) [Concomitant]
  9. PERCOCET [Concomitant]
  10. FLEXERIL [Concomitant]
  11. ALOXI [Concomitant]
  12. DECADRON [Concomitant]

REACTIONS (8)
  - BLEPHARITIS [None]
  - CHALAZION [None]
  - DRUG ERUPTION [None]
  - NODULE [None]
  - PAIN IN EXTREMITY [None]
  - RASH [None]
  - STOMACH DISCOMFORT [None]
  - UPPER RESPIRATORY TRACT INFECTION [None]
